FAERS Safety Report 8768251 (Version 2)
Quarter: 2012Q4

REPORT INFORMATION
  Report Type: 
  Country: JP (occurrence: JP)
  Receive Date: 20120905
  Receipt Date: 20120912
  Transmission Date: 20130627
  Serious: Yes (Hospitalization)
  Sender: FDA-Public Use
  Company Number: JP-GLAXOSMITHKLINE-B0827749A

PATIENT
  Age: 69 Year
  Sex: Female
  Weight: 79 kg

DRUGS (8)
  1. VALTREX [Suspect]
     Indication: HERPES ZOSTER
     Dosage: 1000MG Three times per day
     Route: 048
     Dates: start: 20120827, end: 20120829
  2. AMLODIPINE BESILATE [Concomitant]
     Indication: HYPERTENSION
     Dosage: 2.5MG Per day
     Route: 048
  3. BLOPRESS [Concomitant]
     Indication: HYPERTENSION
     Dosage: 8MG Per day
     Route: 048
  4. ETIZOLAM [Concomitant]
     Dosage: .5MG Three times per day
     Route: 048
  5. MYSLEE [Concomitant]
     Indication: INSOMNIA
     Dosage: 5MG Per day
     Route: 048
  6. GAMOFA [Concomitant]
     Dosage: 10MG Twice per day
     Route: 065
  7. BIOFERMIN [Concomitant]
     Route: 048
  8. MYORELARK [Concomitant]
     Route: 048

REACTIONS (5)
  - Altered state of consciousness [Recovering/Resolving]
  - Renal failure acute [Recovering/Resolving]
  - Blood urea increased [Unknown]
  - Blood creatinine increased [Unknown]
  - Renal impairment [Unknown]
